FAERS Safety Report 16583261 (Version 1)
Quarter: 2019Q3

REPORT INFORMATION
  Report Type: Spontaneous
  Country: FR (occurrence: FR)
  Receive Date: 20190717
  Receipt Date: 20190717
  Transmission Date: 20191004
  Serious: Yes (Other)
  Sender: FDA-Public Use
  Company Number: FR-PFIZER INC-2014240406

PATIENT
  Age: 69 Year
  Sex: Male

DRUGS (4)
  1. IBUPROFEN. [Suspect]
     Active Substance: IBUPROFEN
     Indication: PAIN
     Dosage: UNK
     Route: 048
  2. SEVIKAR [Suspect]
     Active Substance: AMLODIPINE BESYLATE\OLMESARTAN MEDOXOMIL
     Indication: HYPERTENSION
     Dosage: UNK
     Route: 048
  3. PARACETAMOL [Concomitant]
     Active Substance: ACETAMINOPHEN
     Dosage: UNK
  4. ALPRESS [Concomitant]
     Active Substance: PRAZOSIN
     Dosage: UNK

REACTIONS (5)
  - Pruritus [Unknown]
  - Angioedema [Recovered/Resolved]
  - Dyspnoea [Unknown]
  - Erythema [Unknown]
  - Tongue oedema [Unknown]

NARRATIVE: CASE EVENT DATE: 2011
